FAERS Safety Report 12297376 (Version 3)
Quarter: 2016Q3

REPORT INFORMATION
  Report Type: Spontaneous
  Country: US (occurrence: US)
  Receive Date: 20160422
  Receipt Date: 20160926
  Transmission Date: 20161109
  Serious: Yes (Other)
  Sender: FDA-Public Use
  Company Number: US-TEVA-652721USA

PATIENT
  Sex: Female

DRUGS (1)
  1. COPAXONE [Suspect]
     Active Substance: GLATIRAMER ACETATE
     Dosage: UNKNOWN FORM STRENGTH
     Route: 065

REACTIONS (3)
  - Exposure during pregnancy [Unknown]
  - Live birth [Unknown]
  - Injection site reaction [Unknown]
